FAERS Safety Report 24656880 (Version 1)
Quarter: 2024Q4

REPORT INFORMATION
  Report Type: Spontaneous
  Country: FR (occurrence: FR)
  Receive Date: 20241125
  Receipt Date: 20241125
  Transmission Date: 20250115
  Serious: Yes (Other)
  Sender: ORGANON
  Company Number: None

PATIENT
  Age: 1 Day
  Sex: Male
  Weight: 2.86 kg

DRUGS (1)
  1. SINGULAIR [Suspect]
     Active Substance: MONTELUKAST SODIUM
     Indication: Asthma
     Dosage: UNK
     Route: 064
     Dates: start: 20230526, end: 20240117

REACTIONS (1)
  - Urethral valves [Not Recovered/Not Resolved]

NARRATIVE: CASE EVENT DATE: 20240118
